FAERS Safety Report 9722312 (Version 2)
Quarter: 2013Q4

REPORT INFORMATION
  Report Type: Spontaneous
  Country: US (occurrence: US)
  Receive Date: 20131202
  Receipt Date: 20131220
  Transmission Date: 20140711
  Serious: Yes (Hospitalization)
  Sender: FDA-Public Use
  Company Number: US-JNJFOC-20131114872

PATIENT
  Age: 66 Year
  Sex: Male
  Weight: 79.38 kg

DRUGS (4)
  1. XARELTO [Suspect]
     Indication: COAGULOPATHY
     Route: 048
     Dates: start: 20130617, end: 20130617
  2. LIPITOR [Concomitant]
     Route: 065
  3. AVODART [Concomitant]
     Route: 065
  4. ASPIRIN [Concomitant]
     Route: 065

REACTIONS (5)
  - Convulsion [Recovered/Resolved]
  - Agitation [Unknown]
  - Dizziness [Recovered/Resolved]
  - Asthenia [Recovered/Resolved]
  - Headache [Recovered/Resolved]
